FAERS Safety Report 13626845 (Version 2)
Quarter: 2017Q2

REPORT INFORMATION
  Report Type: Report from Study
  Country: None (occurrence: US)
  Receive Date: 20170608
  Receipt Date: 20170614
  Transmission Date: 20170830
  Serious: Yes (Life-Threatening)
  Sender: FDA-Public Use
  Company Number: US-ABBVIE-17K-163-2000501-00

PATIENT
  Age: 42 Year
  Sex: Female
  Weight: 67.19 kg

DRUGS (9)
  1. HUMIRA [Suspect]
     Active Substance: ADALIMUMAB
     Indication: COLITIS ULCERATIVE
     Route: 058
     Dates: end: 2013
  2. ZOLOFT [Concomitant]
     Active Substance: SERTRALINE HYDROCHLORIDE
     Indication: PRODUCT USED FOR UNKNOWN INDICATION
  3. DILAUDID [Concomitant]
     Active Substance: HYDROMORPHONE HYDROCHLORIDE
     Indication: PRODUCT USED FOR UNKNOWN INDICATION
  4. HUMIRA [Suspect]
     Active Substance: ADALIMUMAB
     Route: 058
     Dates: start: 20170526, end: 20170526
  5. METHOTREXATE. [Concomitant]
     Active Substance: METHOTREXATE
     Indication: COLITIS ULCERATIVE
  6. ALLEGRA [Concomitant]
     Active Substance: FEXOFENADINE HYDROCHLORIDE
     Indication: SEASONAL ALLERGY
  7. DELZICOL [Concomitant]
     Active Substance: MESALAMINE
     Indication: COLITIS ULCERATIVE
  8. RANITIDINE. [Concomitant]
     Active Substance: RANITIDINE
     Indication: PRODUCT USED FOR UNKNOWN INDICATION
  9. PENICILLIN [Suspect]
     Active Substance: PENICILLIN
     Indication: STREPTOCOCCUS TEST
     Route: 065
     Dates: start: 20141125, end: 201411

REACTIONS (7)
  - Joint swelling [Not Recovered/Not Resolved]
  - Apnoea [Recovered/Resolved]
  - Anaphylactic reaction [Recovered/Resolved]
  - Streptococcus test [Recovered/Resolved]
  - Exposure during pregnancy [Unknown]
  - Colitis ulcerative [Not Recovered/Not Resolved]
  - Live birth [Unknown]

NARRATIVE: CASE EVENT DATE: 201411
